FAERS Safety Report 9937508 (Version 2)
Quarter: 2014Q1

REPORT INFORMATION
  Report Type: Spontaneous
  Country: US (occurrence: US)
  Receive Date: 20140303
  Receipt Date: 20140310
  Transmission Date: 20141002
  Serious: Yes (Hospitalization)
  Sender: FDA-Public Use
  Company Number: US-BIOGENIDEC-2014BI019391

PATIENT
  Age: 39 Year
  Sex: Female

DRUGS (13)
  1. TYSABRI [Suspect]
     Indication: MULTIPLE SCLEROSIS
     Route: 042
     Dates: start: 20131223
  2. AVONEX [Concomitant]
     Indication: MULTIPLE SCLEROSIS
     Route: 030
  3. AMPYRA [Concomitant]
     Indication: MULTIPLE SCLEROSIS
     Dates: start: 20120601
  4. PREDNISONE [Concomitant]
     Route: 048
  5. IMITREX [Concomitant]
     Route: 048
  6. NEURONTIN [Concomitant]
     Route: 048
  7. NORTRIPTYLINE [Concomitant]
     Route: 048
  8. OXYBUTYNIN [Concomitant]
     Route: 048
  9. PHENERGAN [Concomitant]
     Route: 048
  10. TOPAMAX [Concomitant]
     Route: 048
  11. TORADOL [Concomitant]
  12. VITAMIN B12 [Concomitant]
     Dosage: DOSE UNIT:1000
  13. METOPROLOL [Concomitant]
     Route: 048

REACTIONS (2)
  - Multiple sclerosis relapse [Not Recovered/Not Resolved]
  - Hypoaesthesia [Unknown]
